FAERS Safety Report 9952693 (Version 1)
Quarter: 2014Q1

REPORT INFORMATION
  Report Type: Report from Study
  Country: US (occurrence: US)
  Receive Date: 20140304
  Receipt Date: 20140304
  Transmission Date: 20141002
  Serious: Yes (Hospitalization)
  Sender: FDA-Public Use
  Company Number: US-ABBVIE-13P-163-1078835-00

PATIENT
  Age: 27 Year
  Sex: Male

DRUGS (3)
  1. HUMIRA [Suspect]
     Indication: CROHN^S DISEASE
     Route: 058
     Dates: start: 20121022, end: 20121022
  2. HUMIRA [Suspect]
     Route: 058
     Dates: start: 20121105, end: 20121105
  3. HUMIRA [Suspect]
     Route: 058
     Dates: start: 20121121, end: 201303

REACTIONS (2)
  - Crohn^s disease [Recovering/Resolving]
  - Drug ineffective [Unknown]
